FAERS Safety Report 14204158 (Version 1)
Quarter: 2017Q4

REPORT INFORMATION
  Report Type: Spontaneous
  Country: US (occurrence: US)
  Receive Date: 20171117
  Receipt Date: 20171117
  Transmission Date: 20180321
  Serious: Yes (Hospitalization, Disabling)
  Sender: FDA-Public Use
  Company Number: None

PATIENT
  Age: 54 Year
  Sex: Male
  Weight: 54 kg

DRUGS (4)
  1. LEVAQUIN [Suspect]
     Active Substance: LEVOFLOXACIN
     Indication: SINUSITIS
     Dosage: ?          QUANTITY:10 CAPSULE(S);?
     Route: 048
     Dates: start: 20090801, end: 20090811
  2. HYDROMORPHONE [Concomitant]
     Active Substance: HYDROMORPHONE
  3. CLONAZEPAM. [Concomitant]
     Active Substance: CLONAZEPAM
  4. TIZANIDINE. [Concomitant]
     Active Substance: TIZANIDINE

REACTIONS (9)
  - Sciatica [None]
  - Pain [None]
  - General physical health deterioration [None]
  - Mental disorder [None]
  - Neuropathy peripheral [None]
  - Gastrointestinal disorder [None]
  - Impaired work ability [None]
  - Meniscus injury [None]
  - Urinary tract infection [None]

NARRATIVE: CASE EVENT DATE: 20090814
